FAERS Safety Report 8341745-0 (Version None)
Quarter: 2012Q2

REPORT INFORMATION
  Report Type: 
  Country: None (occurrence: None)
  Receive Date: 20120503
  Receipt Date: 20120417
  Transmission Date: 20120825
  Serious: Yes (Hospitalization, Other)
  Sender: FDA-Public Use
  Company Number: JPI-P-019433

PATIENT
  Age: 65 Year
  Sex: Female
  Weight: 116.1208 kg

DRUGS (3)
  1. MULTIPLE UNSPECIFIED MEDICATIONS [Concomitant]
  2. MODAFINIL [Concomitant]
  3. XYREM [Suspect]
     Indication: CATAPLEXY
     Dosage: ,ORAL, 9 GM (4.5 GM,2 IN 1 D),ORAL
     Route: 048
     Dates: start: 20040820

REACTIONS (5)
  - MYOCARDIAL INFARCTION [None]
  - DYSPEPSIA [None]
  - CHOLELITHIASIS [None]
  - CHOLECYSTECTOMY [None]
  - ANGINA PECTORIS [None]
